FAERS Safety Report 25572324 (Version 1)
Quarter: 2025Q3

REPORT INFORMATION
  Report Type: Spontaneous
  Country: US (occurrence: None)
  Receive Date: 20250717
  Receipt Date: 20250717
  Transmission Date: 20251021
  Serious: Yes (Hospitalization)
  Sender: FDA-CTU
  Company Number: None

PATIENT
  Sex: Male

DRUGS (4)
  1. BCG LIVE [Suspect]
     Active Substance: BCG LIVE
  2. ISONIAZID [Suspect]
     Active Substance: ISONIAZID
     Dosage: FREQUENCY : DAILY;?
  3. RIFAMPIN [Suspect]
     Active Substance: RIFAMPIN
     Dosage: FREQUENCY : DAILY;?
  4. ETHAMBUTOL [Suspect]
     Active Substance: ETHAMBUTOL HYDROCHLORIDE
     Dosage: FREQUENCY : DAILY;?

REACTIONS (6)
  - Vascular pseudoaneurysm [None]
  - Bacillus Calmette-Guerin infection [None]
  - Bovine tuberculosis [None]
  - Suprapubic pain [None]
  - Haematuria [None]
  - Therapy cessation [None]
